FAERS Safety Report 9854106 (Version 1)
Quarter: 2014Q1

REPORT INFORMATION
  Report Type: Spontaneous
  Country: US (occurrence: US)
  Receive Date: 20140129
  Receipt Date: 20140129
  Transmission Date: 20141002
  Serious: Yes (Hospitalization)
  Sender: FDA-Public Use
  Company Number: US-GE HEALTHCARE MEDICAL DIAGNOSTICS-OMPQ-PR-1401S-0090

PATIENT
  Age: 58 Year
  Sex: Male

DRUGS (6)
  1. OMNIPAQUE [Suspect]
     Indication: PULMONARY EMBOLISM
     Dosage: DOSE NOT REPORTED
     Route: 042
     Dates: start: 20130607, end: 20130607
  2. OMNIPAQUE [Suspect]
     Indication: DIAGNOSTIC PROCEDURE
  3. NITROGLYCERIN [Concomitant]
     Indication: CHEST PAIN
  4. DILAUDID [Concomitant]
     Indication: DISCOMFORT
  5. HEPARIN [Concomitant]
     Indication: ACUTE MYOCARDIAL INFARCTION
  6. INTEGRILIN [Concomitant]
     Indication: ACUTE MYOCARDIAL INFARCTION

REACTIONS (2)
  - Anaphylactic shock [Recovering/Resolving]
  - Chest pain [Recovering/Resolving]
